FAERS Safety Report 7434839-5 (Version None)
Quarter: 2011Q2

REPORT INFORMATION
  Report Type: 
  Country: None (occurrence: None)
  Receive Date: 20110425
  Receipt Date: 20110418
  Transmission Date: 20111010
  Serious: Yes (Hospitalization)
  Sender: FDA-Public Use
  Company Number: US-ROCHE-667320

PATIENT
  Sex: Male

DRUGS (6)
  1. URSODIOL [Concomitant]
     Dates: start: 20090506
  2. BELATACEPT [Suspect]
     Dosage: PATIENT WAS RECEIVING THE MORE INTENSIVE BLEATACEPT REGIMEN
     Route: 042
     Dates: start: 20090506
  3. VALCYTE [Concomitant]
     Dates: start: 20090506
  4. MYCOPHENOLATE MOFETIL [Suspect]
     Route: 048
     Dates: start: 20090506
  5. BASILIXIMAB [Suspect]
     Route: 042
     Dates: start: 20090506, end: 20090510
  6. BACTRIM [Concomitant]
     Dates: start: 20090506

REACTIONS (2)
  - SEPSIS [None]
  - BILIARY ABSCESS [None]
